FAERS Safety Report 7590806-2 (Version None)
Quarter: 2011Q3

REPORT INFORMATION
  Report Type: 
  Country: None (occurrence: None)
  Receive Date: 20110705
  Receipt Date: 20110630
  Transmission Date: 20111222
  Serious: Yes (Other)
  Sender: FDA-Public Use
  Company Number: US-PFIZER INC-2011127438

PATIENT
  Sex: Female
  Weight: 52.15 kg

DRUGS (6)
  1. MULTI-VITAMINS [Concomitant]
  2. LACTOBACILLUS ACIDOPHILUS [Concomitant]
     Indication: HYPERTENSION
     Dosage: 1 DF, 2X/DAY
  3. PROTONIX [Suspect]
     Indication: GASTROOESOPHAGEAL REFLUX DISEASE
     Dosage: 20 MG, UNK
     Dates: start: 20050101
  4. CALCIUM CITRATE/COLECALCIFEROL/MAGNESIUM CITRATE [Concomitant]
     Dosage: 1200 MG, DAILY
  5. BISOPROLOL FUMARATE AND HYDROCHLOROTHIAZIDE [Suspect]
     Indication: HYPERTENSION
     Dosage: 10/6.25 MG, DAILY
     Dates: end: 20110609
  6. OMEPRAZOLE [Suspect]
     Indication: GASTROOESOPHAGEAL REFLUX DISEASE
     Dosage: 20 MG, UNK
     Dates: start: 20091112, end: 20110201

REACTIONS (6)
  - GASTROENTERITIS BACTERIAL [None]
  - FLATULENCE [None]
  - ABDOMINAL PAIN LOWER [None]
  - DYSPEPSIA [None]
  - BACK PAIN [None]
  - LACTOSE INTOLERANCE [None]
